FAERS Safety Report 4814923-2 (Version None)
Quarter: 2005Q4

REPORT INFORMATION
  Report Type: 
  Country: None (occurrence: None)
  Receive Date: 20051028
  Receipt Date: 20051024
  Transmission Date: 20060501
  Serious: Yes (Hospitalization)
  Sender: FDA-Public Use
  Company Number: PHRM2005FR02831

PATIENT
  Age: 68 Year
  Sex: Male
  Weight: 73 kg

DRUGS (4)
  1. CORTANCYL [Suspect]
     Indication: PHOTODERMATOSIS
     Dosage: 60 MG, QD
     Route: 048
     Dates: start: 20050608, end: 20050701
  2. CORTANCYL [Suspect]
     Dosage: 75 MG DAILY
     Route: 048
     Dates: start: 20050701
  3. CORTANCYL [Suspect]
     Dosage: 50 MG PER DAY
     Route: 048
     Dates: start: 20050804
  4. NEORAL [Suspect]
     Indication: PHOTODERMATOSIS
     Dosage: 150 MG, BID
     Route: 048
     Dates: start: 20050804

REACTIONS (2)
  - DIABETES MELLITUS [None]
  - HYPERTENSION [None]
